FAERS Safety Report 17578788 (Version 2)
Quarter: 2020Q1

REPORT INFORMATION
  Report Type: Report from Study
  Country: PL (occurrence: PL)
  Receive Date: 20200324
  Receipt Date: 20200330
  Transmission Date: 20200409
  Serious: Yes (Other)
  Sender: FDA-Public Use
  Company Number: PL-EXELIXIS-XL18420028341

PATIENT
  Age: 58 Year
  Sex: Male
  Weight: 94.5 kg

DRUGS (13)
  1. PRESTARIUM [Concomitant]
     Active Substance: PERINDOPRIL
  2. GLUCOPHAGE [Concomitant]
     Active Substance: METFORMIN HYDROCHLORIDE
  3. ROCEPHIN [Concomitant]
     Active Substance: CEFTRIAXONE SODIUM
  4. PANTOPRAZOL [Concomitant]
     Active Substance: PANTOPRAZOLE SODIUM
  5. SPIRONOL [Concomitant]
     Active Substance: SPIRONOLACTONE
  6. ATEZOLIZUMAB. [Suspect]
     Active Substance: ATEZOLIZUMAB
     Indication: HEPATOCELLULAR CARCINOMA
     Dosage: 1200 MG, Q3WEEKS
     Route: 042
     Dates: start: 20191219
  7. PROQUIN [Concomitant]
  8. ATROPIN [Concomitant]
     Active Substance: ATROPINE
  9. TRAMADOL. [Concomitant]
     Active Substance: TRAMADOL
  10. FUROSEMIDE. [Concomitant]
     Active Substance: FUROSEMIDE
  11. KLONOPIN [Concomitant]
     Active Substance: CLONAZEPAM
  12. XL184 [Suspect]
     Active Substance: CABOZANTINIB
     Indication: HEPATOCELLULAR CARCINOMA
     Dosage: 40 MG, QD
     Route: 048
     Dates: start: 20191219
  13. ESPUMISAN [Concomitant]
     Active Substance: DIMETHICONE

REACTIONS (1)
  - Drug-induced liver injury [Not Recovered/Not Resolved]

NARRATIVE: CASE EVENT DATE: 20200309
